FAERS Safety Report 20728416 (Version 1)
Quarter: 2022Q2

REPORT INFORMATION
  Report Type: Report from Study
  Country: US (occurrence: US)
  Receive Date: 20220420
  Receipt Date: 20220420
  Transmission Date: 20220720
  Serious: Yes (Other)
  Sender: FDA-Public Use
  Company Number: US-ABBVIE-21K-163-4132620-00

PATIENT
  Sex: Female

DRUGS (1)
  1. HUMIRA [Suspect]
     Active Substance: ADALIMUMAB
     Indication: Hidradenitis
     Route: 058
     Dates: start: 20210921

REACTIONS (10)
  - Carpal tunnel syndrome [Unknown]
  - Fatigue [Unknown]
  - Psychiatric symptom [Unknown]
  - Impaired work ability [Unknown]
  - Self-consciousness [Unknown]
  - Quality of life decreased [Unknown]
  - Asthenia [Unknown]
  - Hidradenitis [Recovering/Resolving]
  - Unevaluable event [Unknown]
  - Asthenia [Unknown]

NARRATIVE: CASE EVENT DATE: 20210101
